FAERS Safety Report 9617316 (Version 2)
Quarter: 2013Q4

REPORT INFORMATION
  Report Type: Spontaneous
  Country: US (occurrence: US)
  Receive Date: 20131011
  Receipt Date: 20131114
  Transmission Date: 20140711
  Serious: Yes (Other)
  Sender: FDA-Public Use
  Company Number: US-TEVA-437351USA

PATIENT
  Age: 34 Year
  Sex: Female
  Weight: 100.33 kg

DRUGS (1)
  1. PARAGARD 380A [Suspect]
     Indication: CONTRACEPTION
     Route: 015
     Dates: start: 20071121, end: 20130923

REACTIONS (6)
  - Vaginal haemorrhage [Unknown]
  - Medical device complication [Not Recovered/Not Resolved]
  - Device breakage [Not Recovered/Not Resolved]
  - Vulvovaginal pain [Unknown]
  - Metrorrhagia [Unknown]
  - Abdominal pain [Unknown]
